FAERS Safety Report 4371488-X (Version None)
Quarter: 2004Q2

REPORT INFORMATION
  Report Type: 
  Country: None (occurrence: None)
  Receive Date: 20040601
  Receipt Date: 20040517
  Transmission Date: 20050107
  Serious: Yes (Hospitalization, Other)
  Sender: FDA-Public Use
  Company Number: 2004022537

PATIENT
  Sex: Male

DRUGS (4)
  1. NEURONTIN [Suspect]
     Indication: CONVULSION
     Dosage: 3600 MG (7 TIMES DAILY) ORAL
     Route: 048
  2. DILANTIN [Suspect]
     Indication: CONVULSION
     Dosage: 500 MG ORAL
     Route: 048
  3. PROTEIN SUPPLEMENTS [Concomitant]
  4. PHENOBARBITAL TAB [Concomitant]

REACTIONS (31)
  - AMNESIA [None]
  - ANOREXIA [None]
  - APHASIA [None]
  - BALANCE DISORDER [None]
  - BREAST MASS [None]
  - BREAST PAIN [None]
  - CONVULSION [None]
  - DELUSIONAL PERCEPTION [None]
  - DRUG LEVEL FLUCTUATING [None]
  - DRUG TOXICITY [None]
  - DYSPHAGIA [None]
  - DYSURIA [None]
  - EATING DISORDER [None]
  - FALL [None]
  - GYNAECOMASTIA [None]
  - HEADACHE [None]
  - HYPOAESTHESIA [None]
  - IMPATIENCE [None]
  - INSOMNIA [None]
  - LIVER FUNCTION TEST ABNORMAL [None]
  - MOOD SWINGS [None]
  - NAUSEA [None]
  - PERSONALITY CHANGE [None]
  - PRURITUS GENERALISED [None]
  - THERMAL BURN [None]
  - THIRST DECREASED [None]
  - TOOTH INJURY [None]
  - TOOTH LOSS [None]
  - VOMITING [None]
  - WEIGHT DECREASED [None]
  - WEIGHT INCREASED [None]
